FAERS Safety Report 25974296 (Version 1)
Quarter: 2025Q4

REPORT INFORMATION
  Report Type: Spontaneous
  Country: US (occurrence: None)
  Receive Date: 20251028
  Receipt Date: 20251028
  Transmission Date: 20260118
  Serious: Yes (Death)
  Sender: FDA-CTU
  Company Number: None

PATIENT
  Age: 6 Month
  Sex: Male

DRUGS (1)
  1. SILDENAFIL [Suspect]
     Active Substance: SILDENAFIL
     Indication: Cardiovascular disorder
     Dosage: 0.6ML TID ORAL ?
     Route: 048
     Dates: start: 20250618, end: 20250929

REACTIONS (1)
  - Death [None]

NARRATIVE: CASE EVENT DATE: 20250929
